FAERS Safety Report 19502939 (Version 1)
Quarter: 2021Q3

REPORT INFORMATION
  Report Type: Spontaneous
  Country: US (occurrence: US)
  Receive Date: 20210707
  Receipt Date: 20210707
  Transmission Date: 20211014
  Serious: Yes (Hospitalization)
  Sender: FDA-Public Use
  Company Number: US-ELI_LILLY_AND_COMPANY-US202106013802

PATIENT
  Sex: Male

DRUGS (2)
  1. BASAGLAR [Suspect]
     Active Substance: INSULIN GLARGINE
     Indication: TYPE 1 DIABETES MELLITUS
     Dosage: 70 U, DAILY (BEDTIME)
     Route: 058
     Dates: start: 2019
  2. BASAGLAR [Suspect]
     Active Substance: INSULIN GLARGINE
     Dosage: 70 U, DAILY (AT BEDTIME)
     Route: 058

REACTIONS (4)
  - Cardiac failure congestive [Unknown]
  - Visual impairment [Unknown]
  - Blood pressure increased [Unknown]
  - Renal failure [Unknown]

NARRATIVE: CASE EVENT DATE: 2019
